FAERS Safety Report 17442492 (Version 3)
Quarter: 2020Q1

REPORT INFORMATION
  Report Type: Spontaneous
  Country: DE (occurrence: DE)
  Receive Date: 20200220
  Receipt Date: 20200310
  Transmission Date: 20200409
  Serious: Yes (Other)
  Sender: FDA-Public Use
  Company Number: DE-GILEAD-2020-0451848

PATIENT
  Age: 64 Year
  Sex: Male
  Weight: 93 kg

DRUGS (8)
  1. ACLIDINIUM [Concomitant]
     Active Substance: ACLIDINIUM BROMIDE
     Dosage: 400 UG, QD
     Route: 048
     Dates: start: 20081001
  2. TAMSULOSIN [Concomitant]
     Active Substance: TAMSULOSIN
     Dosage: 0.4 MG
     Route: 048
     Dates: start: 20150401
  3. DESCOVY [Suspect]
     Active Substance: EMTRICITABINE\TENOFOVIR ALAFENAMIDE FUMARATE
     Indication: HIV INFECTION
     Dosage: UNK
     Route: 048
     Dates: start: 201804, end: 201901
  4. BIKTARVY [Suspect]
     Active Substance: BICTEGRAVIR SODIUM\EMTRICITABINE\TENOFOVIR ALAFENAMIDE FUMARATE
     Indication: PRODUCT USED FOR UNKNOWN INDICATION
     Dosage: UNK
     Route: 065
     Dates: start: 201901
  5. NORVIR [Concomitant]
     Active Substance: RITONAVIR
     Indication: HIV INFECTION
     Dosage: UNK
     Route: 048
     Dates: start: 20090401, end: 20180401
  6. ATAZANAVIR. [Concomitant]
     Active Substance: ATAZANAVIR
     Indication: HIV INFECTION
     Dosage: 300 MG, QD
     Route: 048
     Dates: start: 20090401, end: 20180401
  7. OLMESARTAN [Concomitant]
     Active Substance: OLMESARTAN
     Dosage: 20 MG, QD
     Route: 048
     Dates: start: 20070101
  8. TRUVADA [Suspect]
     Active Substance: EMTRICITABINE\TENOFOVIR DISOPROXIL FUMARATE
     Indication: HIV INFECTION
     Dosage: UNK UNK 200/245, QD
     Route: 048
     Dates: start: 20090401, end: 20180401

REACTIONS (8)
  - Benign prostatic hyperplasia [Not Recovered/Not Resolved]
  - Benign prostatic hyperplasia [Unknown]
  - Hypersensitivity [Unknown]
  - Hypothyroidism [Unknown]
  - Prostate cancer [Unknown]
  - Prostatitis [Unknown]
  - Prostatitis [Unknown]
  - Hypertension [Unknown]

NARRATIVE: CASE EVENT DATE: 201506
